FAERS Safety Report 6646805-8 (Version None)
Quarter: 2010Q1

REPORT INFORMATION
  Report Type: 
  Country: None (occurrence: None)
  Receive Date: 20100323
  Receipt Date: 20100312
  Transmission Date: 20100710
  Serious: Yes (Other)
  Sender: FDA-Public Use
  Company Number: US-SANOFI-AVENTIS-2010SA016036

PATIENT
  Age: 69 Year
  Sex: Female
  Weight: 70.75 kg

DRUGS (22)
  1. PLAVIX [Suspect]
     Route: 048
     Dates: start: 20000101
  2. PLAVIX [Suspect]
     Indication: STENT PLACEMENT
     Route: 048
     Dates: start: 20000101
  3. LISINOPRIL [Concomitant]
     Route: 065
     Dates: start: 20050101, end: 20050101
  4. LOPRESSOR [Concomitant]
     Route: 048
  5. COREG [Concomitant]
     Route: 048
  6. MICARDIS [Concomitant]
     Route: 048
  7. NITROGLYCERIN [Concomitant]
     Dosage: 12 HOURS ON AT 5PM, 12 HOURS OFF SINCE 2000; CHANGED FROM EVERY MORNING 7MONTHS AGO
     Route: 061
     Dates: start: 20000101
  8. LYRICA [Concomitant]
     Route: 048
     Dates: start: 20090101
  9. ALDACTONE [Concomitant]
     Route: 048
  10. ATIVAN [Concomitant]
     Dosage: 1/2 TABLET
     Route: 048
     Dates: start: 20000101
  11. ADVAIR DISKUS 100/50 [Concomitant]
     Route: 065
     Dates: start: 20040101
  12. VALTREX [Concomitant]
     Dosage: 1 GRAM DAILY FOR FOUR DAYS IF BREAKOUT OCCURS
     Route: 048
  13. ALL OTHER THERAPEUTIC PRODUCTS [Concomitant]
     Route: 065
  14. IPRATROPIUM BROMIDE/SALBUTAMOL SULFATE [Concomitant]
     Dosage: DOSE:2 PUFF(S)
     Route: 065
  15. ALBUTEROL [Concomitant]
     Route: 065
  16. IMDUR [Concomitant]
     Route: 048
     Dates: start: 20090101
  17. IMDUR [Concomitant]
     Route: 048
     Dates: start: 20000101, end: 20090101
  18. LANOXIN [Concomitant]
     Route: 048
  19. BENTYL [Concomitant]
     Route: 065
  20. DARVOCET-N 100 [Concomitant]
     Route: 065
  21. LASIX [Concomitant]
     Route: 048
     Dates: start: 20000101
  22. REGLAN [Concomitant]
     Route: 065
     Dates: start: 20090101

REACTIONS (9)
  - ABDOMINAL DISCOMFORT [None]
  - ANGINA UNSTABLE [None]
  - CEREBROVASCULAR ACCIDENT [None]
  - DIABETIC NEUROPATHY [None]
  - GASTROOESOPHAGEAL REFLUX DISEASE [None]
  - MYOCARDIAL INFARCTION [None]
  - PAIN [None]
  - PNEUMONIA ASPIRATION [None]
  - URINE OUTPUT DECREASED [None]
